FAERS Safety Report 23260761 (Version 1)
Quarter: 2023Q4

REPORT INFORMATION
  Report Type: Other
  Country: DE (occurrence: None)
  Receive Date: 20231205
  Receipt Date: 20231205
  Transmission Date: 20240109
  Serious: No
  Sender: FDA-Public Use
  Company Number: DE-ROCHE-2808755

PATIENT
  Age: 50 Year
  Sex: Male

DRUGS (3)
  1. OCREVUS [Suspect]
     Active Substance: OCRELIZUMAB
     Indication: Secondary progressive multiple sclerosis
     Route: 042
     Dates: start: 20200706
  2. OCREVUS [Suspect]
     Active Substance: OCRELIZUMAB
     Route: 042
     Dates: start: 20210115
  3. PANTOPRAZOLE [Concomitant]
     Active Substance: PANTOPRAZOLE

REACTIONS (14)
  - Yellow skin [Recovered/Resolved]
  - Fatigue [Not Recovered/Not Resolved]
  - Urine odour abnormal [Recovered/Resolved]
  - Micturition disorder [Recovering/Resolving]
  - Constipation [Not Recovered/Not Resolved]
  - Off label use [Unknown]
  - Headache [Recovered/Resolved]
  - Pyrexia [Not Recovered/Not Resolved]
  - Muscular weakness [Recovered/Resolved]
  - Magnetic resonance imaging abnormal [Not Recovered/Not Resolved]
  - Blood immunoglobulin G decreased [Recovered/Resolved]
  - Syncope [Recovered/Resolved]
  - Gait disturbance [Unknown]
  - COVID-19 [Recovered/Resolved]

NARRATIVE: CASE EVENT DATE: 20200706
